FAERS Safety Report 4874810-0 (Version None)
Quarter: 2006Q1

REPORT INFORMATION
  Report Type: 
  Country: None (occurrence: None)
  Receive Date: 20060109
  Receipt Date: 20060103
  Transmission Date: 20060701
  Serious: Yes (Other)
  Sender: FDA-Public Use
  Company Number: 2006UW00183

PATIENT
  Age: 81 Year
  Sex: Male

DRUGS (2)
  1. IRESSA [Suspect]
     Route: 048
  2. DOCETAXEL [Suspect]
     Route: 042
     Dates: start: 20040322

REACTIONS (2)
  - DEEP VEIN THROMBOSIS [None]
  - PULMONARY EMBOLISM [None]
